FAERS Safety Report 20475270 (Version 2)
Quarter: 2022Q1

REPORT INFORMATION
  Report Type: Report from Study
  Country: US (occurrence: US)
  Receive Date: 20220215
  Receipt Date: 20220224
  Transmission Date: 20220423
  Serious: Yes (Hospitalization)
  Sender: FDA-Public Use
  Company Number: US-BAYER-2022A016897

PATIENT
  Age: 85 Year
  Sex: Female
  Weight: 68.027 kg

DRUGS (5)
  1. ADEMPAS [Suspect]
     Active Substance: RIOCIGUAT
     Indication: Pulmonary arterial hypertension
     Dosage: UNK
     Dates: start: 20211201
  2. ADEMPAS [Suspect]
     Active Substance: RIOCIGUAT
     Indication: Pulmonary arterial hypertension
     Dosage: 1 MG, TID
     Route: 048
     Dates: start: 20220202
  3. COUMADIN [Concomitant]
     Active Substance: WARFARIN SODIUM
     Dosage: UNK
  4. ELIQUIS [Concomitant]
     Active Substance: APIXABAN
  5. AMBRISENTAN [Concomitant]
     Active Substance: AMBRISENTAN

REACTIONS (5)
  - Blood disorder [None]
  - Atrial fibrillation [None]
  - Pulmonary arterial hypertension [Not Recovered/Not Resolved]
  - Fluid retention [Recovering/Resolving]
  - Swelling [Not Recovered/Not Resolved]

NARRATIVE: CASE EVENT DATE: 20211221
